FAERS Safety Report 16668128 (Version 1)
Quarter: 2019Q3

REPORT INFORMATION
  Report Type: Spontaneous
  Country: US (occurrence: US)
  Receive Date: 20190805
  Receipt Date: 20190805
  Transmission Date: 20191004
  Serious: No
  Sender: FDA-Public Use
  Company Number: US-PFIZER INC-2019223579

PATIENT
  Age: 69 Year
  Sex: Male

DRUGS (5)
  1. BENEFIBER [Concomitant]
     Active Substance: STARCH, WHEAT
     Indication: CONSTIPATION
     Dosage: UNK, DAILY (1 POWDER FOR RECONSTITUTION PO DAILY IN 8 OZ WATER)
     Route: 048
     Dates: start: 20171212
  2. COLACE [Concomitant]
     Active Substance: DOCUSATE SODIUM
     Indication: CONSTIPATION
     Dosage: 100 MG, 1X/DAY (EVERY NIGHT AT BEDTIME)
     Route: 048
     Dates: start: 20171212
  3. NEURONTIN [Suspect]
     Active Substance: GABAPENTIN
     Dosage: UNK
     Dates: start: 201512, end: 20180731
  4. ACETAMINOPHEN. [Concomitant]
     Active Substance: ACETAMINOPHEN
     Indication: BACK PAIN
     Dosage: 1000 MG, AS NEEDED (EVERY 6 HOURS)
     Route: 048
     Dates: start: 20180606
  5. MUCINEX [Concomitant]
     Active Substance: GUAIFENESIN
     Indication: NASAL CONGESTION
     Dosage: 1200 MG, AS NEEDED
     Route: 048
     Dates: start: 20180606

REACTIONS (2)
  - Vision blurred [Unknown]
  - Hallucination [Unknown]
